FAERS Safety Report 5155946-6 (Version None)
Quarter: 2006Q4

REPORT INFORMATION
  Report Type: 
  Country: None (occurrence: None)
  Receive Date: 20061114
  Receipt Date: 20061030
  Transmission Date: 20070319
  Serious: Yes (Life-Threatening, Hospitalization)
  Sender: FDA-Public Use
  Company Number: A-US2006-13229

PATIENT
  Age: 64 Year
  Sex: Male
  Weight: 92.1 kg

DRUGS (8)
  1. TRACLEER [Suspect]
     Indication: PULMONARY HYPERTENSION
     Dosage: 62.5 MG, BID, ORAL; 125 MG, BID, ORAL
     Route: 048
     Dates: start: 20060808
  2. AMITRIPTYLINE HCL [Concomitant]
  3. PROBENECID [Concomitant]
  4. ATENOLOL [Concomitant]
  5. SILDENAFIL CITRATE [Concomitant]
  6. LASIX [Concomitant]
  7. POTASSIUM CHLORIDE [Concomitant]
  8. WARFARIN SODIUM [Concomitant]

REACTIONS (12)
  - ANAEMIA [None]
  - CONDITION AGGRAVATED [None]
  - DEHYDRATION [None]
  - DIARRHOEA [None]
  - DYSPNOEA [None]
  - FLUID RETENTION [None]
  - HYPERKALAEMIA [None]
  - OEDEMA [None]
  - PULMONARY HYPERTENSION [None]
  - RENAL FAILURE [None]
  - RENAL FAILURE ACUTE [None]
  - RIGHT VENTRICULAR FAILURE [None]
